FAERS Safety Report 11163569 (Version 1)
Quarter: 2015Q2

REPORT INFORMATION
  Report Type: Other
  Country: DE (occurrence: DE)
  Receive Date: 20150604
  Receipt Date: 20150604
  Transmission Date: 20150821
  Serious: Yes (Congenital Anomaly, Other)
  Sender: FDA-Public Use
  Company Number: DE-MYLANLABS-2015M1017183

PATIENT

DRUGS (6)
  1. FLUOXETINE HYDROCHLORIDE. [Suspect]
     Active Substance: FLUOXETINE HYDROCHLORIDE
     Indication: ANXIETY DISORDER
     Dosage: 20 [MG/D ]
     Route: 064
     Dates: start: 20140417, end: 20141017
  2. MAXIM [Concomitant]
     Active Substance: DIENOGEST\ETHINYL ESTRADIOL
     Indication: ORAL CONTRACEPTION
     Dosage: 0.03 [MG/D ] / 2 [MG/D ]
     Route: 064
     Dates: start: 20140417, end: 20140518
  3. AMITRIPTYLIN [Suspect]
     Active Substance: AMITRIPTYLINE
     Indication: DEPRESSION
     Dosage: 75 [MG/D ]
     Route: 064
     Dates: start: 20140417, end: 20141017
  4. FOLIO FORTE [Concomitant]
     Active Substance: FOLIC ACID\VITAMINS
     Indication: PROPHYLAXIS OF NEURAL TUBE DEFECT
     Dosage: 0.8 [MG/D ]
     Route: 064
     Dates: start: 20140605, end: 20141017
  5. IMAP [Suspect]
     Active Substance: FLUSPIRILENE
     Indication: DEPRESSION
     Dosage: UNK
     Route: 064
     Dates: start: 20140417, end: 20141017
  6. XANAFLU [Suspect]
     Active Substance: INFLUENZA VIRUS VACCINE
     Indication: IMMUNISATION
     Dosage: UNK
     Route: 064
     Dates: start: 20141008, end: 20141008

REACTIONS (3)
  - Foetal exposure during pregnancy [Unknown]
  - Talipes [Not Recovered/Not Resolved]
  - Polydactyly [Not Recovered/Not Resolved]
